FAERS Safety Report 11485982 (Version 1)
Quarter: 2015Q3

REPORT INFORMATION
  Report Type: Spontaneous
  Country: IT (occurrence: IT)
  Receive Date: 20150910
  Receipt Date: 20150910
  Transmission Date: 20151125
  Serious: Yes (Hospitalization, Other)
  Sender: FDA-Public Use
  Company Number: IT-SUN PHARMACEUTICAL INDUSTRIES LTD-2015RR-102796

PATIENT

DRUGS (13)
  1. SORAFENIB [Suspect]
     Active Substance: SORAFENIB
     Indication: NEUROECTODERMAL NEOPLASM
     Dosage: 200 MG, QD
     Route: 048
  2. BUSULFAN [Suspect]
     Active Substance: BUSULFAN
     Indication: NEUROECTODERMAL NEOPLASM
     Dosage: HIGH-DOSE
     Route: 065
  3. IRINOTECAN [Suspect]
     Active Substance: IRINOTECAN
     Indication: NEUROECTODERMAL NEOPLASM
     Dosage: 10 MG/M2, DAILY
     Route: 048
  4. VINCRISTINE [Suspect]
     Active Substance: VINCRISTINE
     Indication: NEUROECTODERMAL NEOPLASM
     Dosage: 0.5 MG/M2, UNK
     Route: 065
  5. MELPHALAN [Suspect]
     Active Substance: MELPHALAN
     Indication: NEUROECTODERMAL NEOPLASM
     Dosage: HIGH-DOSE
     Route: 065
  6. CYCLOPHOSPHAMIDE. [Suspect]
     Active Substance: CYCLOPHOSPHAMIDE
     Indication: NEUROECTODERMAL NEOPLASM
     Dosage: 1.5 MG/M2, UNK
     Route: 065
  7. ETOPOSIDE. [Suspect]
     Active Substance: ETOPOSIDE
     Dosage: 150 MG/M2, UNK
     Route: 065
  8. CARBOPLATIN. [Suspect]
     Active Substance: CARBOPLATIN
     Indication: NEUROECTODERMAL NEOPLASM
     Dosage: 400 MG/M2, UNK
     Route: 065
  9. CYCLOPHOSPHAMIDE. [Suspect]
     Active Substance: CYCLOPHOSPHAMIDE
     Dosage: 1.5 G/M2
     Route: 065
  10. TEMOZOLOMIDE. [Suspect]
     Active Substance: TEMOZOLOMIDE
     Indication: NEUROECTODERMAL NEOPLASM
     Dosage: 100 MG/M2, DAILY
     Route: 048
  11. IFOSFAMIDE. [Suspect]
     Active Substance: IFOSFAMIDE
     Indication: NEUROECTODERMAL NEOPLASM
     Dosage: 2 G/M^2
     Route: 065
  12. ETOPOSIDE. [Suspect]
     Active Substance: ETOPOSIDE
     Indication: NEUROECTODERMAL NEOPLASM
     Dosage: 150 MG/M2, UNK
     Route: 065
  13. DOXORUBICIN [Suspect]
     Active Substance: DOXORUBICIN
     Indication: NEUROECTODERMAL NEOPLASM
     Dosage: 25 MG/M2, UNK
     Route: 065

REACTIONS (4)
  - Rash [Unknown]
  - Bone marrow toxicity [Unknown]
  - Dry skin [Unknown]
  - Off label use [Unknown]
